FAERS Safety Report 4298031-8 (Version None)
Quarter: 2004Q1

REPORT INFORMATION
  Report Type: 
  Country: None (occurrence: None)
  Receive Date: 20040218
  Receipt Date: 20011002
  Transmission Date: 20041129
  Serious: Yes (Other)
  Sender: FDA-Public Use
  Company Number: US-BRISTOL-MYERS SQUIBB COMPANY-11531233

PATIENT
  Sex: Female

DRUGS (4)
  1. STADOL [Suspect]
     Indication: MIGRAINE
     Route: 045
  2. ZOLOFT [Concomitant]
  3. TAGAMET [Concomitant]
  4. PROPRANOLOL [Concomitant]

REACTIONS (3)
  - DEPENDENCE [None]
  - HEADACHE [None]
  - LETHARGY [None]
